FAERS Safety Report 7945248-4 (Version None)
Quarter: 2011Q4

REPORT INFORMATION
  Report Type: 
  Country: None (occurrence: None)
  Receive Date: 20111129
  Receipt Date: 20110825
  Transmission Date: 20120403
  Serious: No
  Sender: FDA-Public Use
  Company Number: US-GLAXOSMITHKLINE-A0942302A

PATIENT
  Age: 53 Year
  Sex: Female

DRUGS (26)
  1. KADIAN [Concomitant]
  2. FERROUS SULFATE TAB [Concomitant]
  3. DIGOXIN [Concomitant]
  4. TRAZODONE HCL [Concomitant]
  5. NORCO [Concomitant]
  6. POLYETHYLENE GLYCOL [Concomitant]
  7. METOLAZONE [Concomitant]
  8. KLOR-CON [Concomitant]
  9. VERAPAMIL [Concomitant]
  10. CYCLOBENZAPRIN [Concomitant]
  11. DOCUSATE [Concomitant]
  12. CALCIUM [Concomitant]
  13. PROPRANOLOL [Concomitant]
  14. CELEBREX [Concomitant]
  15. ENALAPRIL MALEATE [Concomitant]
  16. CYMBALTA [Concomitant]
  17. ZINC [Concomitant]
  18. FLOVENT [Suspect]
     Indication: LUNG INFECTION
     Dosage: 1PUFF TWICE PER DAY
     Route: 055
     Dates: start: 20110824, end: 20110825
  19. PROVENTIL [Concomitant]
  20. FUROSEMIDE [Concomitant]
  21. ZYRTEC [Concomitant]
  22. FLUOXETINE [Concomitant]
  23. CENTRUM [Concomitant]
  24. DEXLANSOPRAZOLE [Concomitant]
  25. NEURONTIN [Concomitant]
  26. SPIRONOLACTONE [Concomitant]

REACTIONS (1)
  - RASH [None]
